FAERS Safety Report 14930829 (Version 1)
Quarter: 2018Q2

REPORT INFORMATION
  Report Type: Spontaneous
  Country: FR (occurrence: FR)
  Receive Date: 20180524
  Receipt Date: 20180524
  Transmission Date: 20180711
  Serious: Yes (Other)
  Sender: FDA-Public Use
  Company Number: FR-MERCK KGAA-2048357

PATIENT
  Age: 64 Year
  Sex: Female
  Weight: 69 kg

DRUGS (2)
  1. NOVOTHYROX [Suspect]
     Active Substance: LEVOTHYROXINE SODIUM
     Route: 048
     Dates: start: 20170321, end: 20171014
  2. NOVOTHYROX [Suspect]
     Active Substance: LEVOTHYROXINE SODIUM
     Indication: POST PROCEDURAL HYPOTHYROIDISM
     Route: 048
     Dates: start: 20170321, end: 20171014

REACTIONS (13)
  - Pain [Recovered/Resolved]
  - Muscle spasms [Recovered/Resolved]
  - Tendon disorder [Recovered/Resolved]
  - Loss of personal independence in daily activities [None]
  - Tendonitis [Recovered/Resolved]
  - Myalgia [Recovered/Resolved]
  - Impaired work ability [None]
  - Mobility decreased [None]
  - Dizziness [Recovered/Resolved]
  - Blood thyroid stimulating hormone abnormal [Recovered/Resolved]
  - Antisocial personality disorder [None]
  - Arthralgia [Recovered/Resolved]
  - Depressed level of consciousness [Recovered/Resolved]

NARRATIVE: CASE EVENT DATE: 2017
